FAERS Safety Report 13149412 (Version 1)
Quarter: 2017Q1

REPORT INFORMATION
  Report Type: Spontaneous
  Country: JP (occurrence: JP)
  Receive Date: 20170125
  Receipt Date: 20170125
  Transmission Date: 20170428
  Serious: Yes (Other)
  Sender: FDA-Public Use
  Company Number: JP-009507513-1606JPN000421

PATIENT
  Age: 51 Year
  Sex: Male
  Weight: 64.9 kg

DRUGS (9)
  1. PEGINTRON [Suspect]
     Active Substance: PEGINTERFERON ALFA-2B
     Indication: MALIGNANT MELANOMA
     Dosage: 6 MICROGRAM PER KILOGRAM, QW
     Route: 058
     Dates: start: 20160513, end: 20160520
  2. ISODINE [Concomitant]
     Active Substance: POVIDONE-IODINE
     Indication: MALIGNANT MELANOMA
     Dosage: 100 G, UNK
     Route: 003
  3. GOREI-SAN [Concomitant]
     Active Substance: HERBALS
     Indication: MALIGNANT MELANOMA
     Dosage: 2.5 G, TID
     Route: 048
  4. ANTEBATE [Concomitant]
     Active Substance: BETAMETHASONE DIPROPIONATE
     Indication: MALIGNANT MELANOMA
     Dosage: 10 G, UNK
     Route: 003
  5. LOXOPROFEN [Concomitant]
     Active Substance: LOXOPROFEN
     Dosage: 60 MG, UNK
     Route: 048
     Dates: start: 20160513
  6. TALION OD [Concomitant]
     Active Substance: BEPOTASTINE BESILATE
     Indication: MALIGNANT MELANOMA
     Dosage: 10 MG, UNK
     Route: 048
  7. TEPRENONE [Concomitant]
     Active Substance: TEPRENONE
     Dosage: 1.5 G, UNK
     Route: 048
     Dates: start: 20160513
  8. BEPIO [Concomitant]
     Indication: MALIGNANT MELANOMA
     Dosage: 15 G, UNK
     Route: 065
  9. HIRUDOID [Concomitant]
     Active Substance: GLYCOSAMINOGLYCANS
     Indication: MALIGNANT MELANOMA
     Dosage: 25 G, UNK
     Route: 003

REACTIONS (3)
  - Metastases to bone [Recovering/Resolving]
  - Abdominal pain [Unknown]
  - Metastases to liver [Recovering/Resolving]

NARRATIVE: CASE EVENT DATE: 20160531
